FAERS Safety Report 24927918 (Version 4)
Quarter: 2025Q3

REPORT INFORMATION
  Report Type: Report from Study
  Country: US (occurrence: US)
  Receive Date: 20250205
  Receipt Date: 20250721
  Transmission Date: 20251020
  Serious: No
  Sender: SUNOVION
  Company Number: US-SUMITOMO PHARMA SWITZERLAND GMBH-2025SPA000914

PATIENT

DRUGS (12)
  1. ORGOVYX [Suspect]
     Active Substance: RELUGOLIX
     Indication: Prostate cancer
     Dosage: 360 MG, SINGLE
     Route: 048
     Dates: start: 202408, end: 202408
  2. ORGOVYX [Suspect]
     Active Substance: RELUGOLIX
     Dosage: 120 MG, QD
     Route: 048
     Dates: start: 202408
  3. ERLEADA [Suspect]
     Active Substance: APALUTAMIDE
     Dosage: 3 DF, QD (3 TABLETS  DAILY)
     Route: 065
  4. ERLEADA [Suspect]
     Active Substance: APALUTAMIDE
     Dosage: 1 DF, QD (1 TABLET OF ERLEADA DAILY)
     Route: 065
  5. ERLEADA [Suspect]
     Active Substance: APALUTAMIDE
     Route: 065
  6. AMLODIPINE [Concomitant]
     Active Substance: AMLODIPINE BESYLATE
     Route: 048
  7. ASPIRIN [Concomitant]
     Active Substance: ASPIRIN
     Route: 048
  8. CARVEDILOL [Concomitant]
     Active Substance: CARVEDILOL
     Route: 048
  9. VITAMIN B12 [Concomitant]
     Active Substance: CYANOCOBALAMIN
     Route: 048
  10. GABAPENTIN [Concomitant]
     Active Substance: GABAPENTIN
     Route: 048
  11. LISINOPRIL [Concomitant]
     Active Substance: LISINOPRIL
     Route: 048
  12. PRAVASTATIN [Concomitant]
     Active Substance: PRAVASTATIN
     Route: 048

REACTIONS (7)
  - Pain [Recovered/Resolved]
  - Diarrhoea [Recovered/Resolved]
  - Insomnia [Unknown]
  - Back pain [Unknown]
  - Myalgia [Unknown]
  - Diarrhoea [Unknown]
  - Incorrect dose administered [Unknown]
